FAERS Safety Report 5433206-3 (Version None)
Quarter: 2007Q3

REPORT INFORMATION
  Report Type: 
  Country: None (occurrence: None)
  Receive Date: 20070831
  Receipt Date: 20070824
  Transmission Date: 20080115
  Serious: Yes (Other)
  Sender: FDA-Public Use
  Company Number: GB-JNJFOC-20070805585

PATIENT
  Age: 41 Year
  Sex: Male
  Weight: 81 kg

DRUGS (1)
  1. REMICADE [Suspect]
     Indication: CROHN'S DISEASE
     Route: 042

REACTIONS (3)
  - CHEST DISCOMFORT [None]
  - TACHYCARDIA [None]
  - VOMITING [None]
